FAERS Safety Report 7809497-8 (Version None)
Quarter: 2011Q4

REPORT INFORMATION
  Report Type: 
  Country: None (occurrence: None)
  Receive Date: 20111012
  Receipt Date: 20111004
  Transmission Date: 20120403
  Serious: Yes (Other)
  Sender: FDA-Public Use
  Company Number: PHHY2011FR62691

PATIENT
  Sex: Female
  Weight: 120 kg

DRUGS (7)
  1. PANTOPRAZOLE SODIUM [Concomitant]
     Dosage: UNK UKN, UNK
  2. ZOLEDRONOC ACID [Suspect]
     Dosage: UNK UKN, UNK
     Route: 042
     Dates: start: 20110126
  3. ARCOXIA [Concomitant]
     Dosage: UNK UKN, UNK
  4. ANALGESICS [Concomitant]
     Indication: OSTEOARTHRITIS
     Dosage: UNK UKN, UNK
  5. VALSARTAN  AND HYDROCHLOROTHIAZIDE [Concomitant]
     Dosage: UNK UKN, UNK
  6. ZOLEDRONOC ACID [Suspect]
     Indication: OSTEOPOROSIS POSTMENOPAUSAL
     Dosage: UNK UKN, UNK
     Route: 042
     Dates: start: 20010201
  7. DITROPAN [Concomitant]
     Dosage: UNK UKN, UNK

REACTIONS (8)
  - PRESBYOPIA [None]
  - DIZZINESS [None]
  - GINGIVAL SWELLING [None]
  - PERIODONTITIS [None]
  - LACRIMATION INCREASED [None]
  - TOOTHACHE [None]
  - BONE PAIN [None]
  - EXOSTOSIS [None]
